FAERS Safety Report 9893211 (Version 1)
Quarter: 2014Q1

REPORT INFORMATION
  Report Type: Spontaneous
  Country: US (occurrence: US)
  Receive Date: 20140213
  Receipt Date: 20140213
  Transmission Date: 20141002
  Serious: Yes (Other)
  Sender: FDA-Public Use
  Company Number: PHEH2014US002886

PATIENT
  Sex: Male

DRUGS (2)
  1. TRILEPTAL [Suspect]
     Indication: TRIGEMINAL NEURALGIA
     Dosage: UNK UKN, UNK
     Route: 048
     Dates: start: 201306, end: 201308
  2. TRILEPTAL [Suspect]
     Dosage: UNK
     Route: 048
     Dates: start: 201401, end: 201401

REACTIONS (4)
  - Skin exfoliation [Recovering/Resolving]
  - Skin reaction [Unknown]
  - Rash [Recovered/Resolved]
  - Rash macular [Recovering/Resolving]
